FAERS Safety Report 4342841-5 (Version None)
Quarter: 2004Q2

REPORT INFORMATION
  Report Type: 
  Country: None (occurrence: None)
  Receive Date: 20040420
  Receipt Date: 20040420
  Transmission Date: 20050107
  Serious: No
  Sender: FDA-Public Use
  Company Number: None

PATIENT
  Age: 77 Year
  Sex: Female
  Weight: 68.0396 kg

DRUGS (2)
  1. INFLIXIMAB 100 MG  VIAL CENTOCOR [Suspect]
     Indication: COLITIS ULCERATIVE
     Dosage: 335 MG Q 8 WEEKS INTRAVENOUS
     Route: 042
     Dates: start: 20030717, end: 20040419
  2. INFLIXIMAB 100 MG  VIAL CENTOCOR [Suspect]
     Indication: CROHN'S DISEASE
     Dosage: 335 MG Q 8 WEEKS INTRAVENOUS
     Route: 042
     Dates: start: 20030717, end: 20040419

REACTIONS (5)
  - BLOOD PRESSURE DECREASED [None]
  - FEELING ABNORMAL [None]
  - FLUSHING [None]
  - PALLOR [None]
  - RASH [None]
